FAERS Safety Report 21208552 (Version 1)
Quarter: 2022Q3

REPORT INFORMATION
  Report Type: Report from Study
  Country: US (occurrence: US)
  Receive Date: 20220812
  Receipt Date: 20220812
  Transmission Date: 20221027
  Serious: Yes (Hospitalization)
  Sender: FDA-Public Use
  Company Number: US-BAUSCH-BL-2022-019891

PATIENT
  Age: 45 Year
  Sex: Male
  Weight: 81.720 kg

DRUGS (1)
  1. SILIQ [Suspect]
     Active Substance: BRODALUMAB
     Indication: Psoriasis
     Dosage: 210MG/1.5 ML, WEEK 0,1 AND 2 AS DIRECTED
     Route: 058

REACTIONS (2)
  - Myocardial infarction [Unknown]
  - Intentional product use issue [Unknown]
